FAERS Safety Report 7487740-5 (Version None)
Quarter: 2011Q2

REPORT INFORMATION
  Report Type: 
  Country: None (occurrence: None)
  Receive Date: 20110518
  Receipt Date: 20110509
  Transmission Date: 20111010
  Serious: Yes (Hospitalization, Other)
  Sender: FDA-Public Use
  Company Number: PHFR2011IE01480

PATIENT
  Sex: Male

DRUGS (3)
  1. CLOZARIL [Suspect]
     Indication: SCHIZOPHRENIA
     Dosage: 775 MG, QD
     Route: 048
     Dates: start: 20060425
  2. AMISULPRIDE [Suspect]
  3. VALPROATE SODIUM [Concomitant]

REACTIONS (4)
  - EYE MOVEMENT DISORDER [None]
  - DYSTONIA [None]
  - DRUG LEVEL ABOVE THERAPEUTIC [None]
  - VISUAL IMPAIRMENT [None]
